FAERS Safety Report 5283333-9 (Version None)
Quarter: 2007Q2

REPORT INFORMATION
  Report Type: 
  Country: None (occurrence: None)
  Receive Date: 20070402
  Receipt Date: 20070322
  Transmission Date: 20071010
  Serious: Yes (Hospitalization)
  Sender: FDA-Public Use
  Company Number: 2007PK00716

PATIENT
  Age: 40 Year
  Sex: Female

DRUGS (8)
  1. ZESTRIL [Suspect]
     Route: 048
     Dates: end: 20061023
  2. CIPROFLOXACIN HYDROCHLORIDE [Suspect]
     Route: 048
     Dates: start: 20060928, end: 20061023
  3. CELLCEPT [Suspect]
     Indication: RENAL TRANSPLANT
     Route: 048
     Dates: end: 20061110
  4. SIMVASTATIN [Suspect]
     Route: 048
     Dates: end: 20061023
  5. OMEPRAZOL HELVE PHARM [Suspect]
     Route: 048
     Dates: end: 20061023
  6. METOLAZONE [Suspect]
     Route: 048
     Dates: end: 20061023
  7. LASIX [Suspect]
     Indication: OEDEMA
  8. PREDNISON [Concomitant]
     Route: 048
     Dates: end: 20061110

REACTIONS (2)
  - CHOLESTASIS [None]
  - INCORRECT DOSE ADMINISTERED [None]
